FAERS Safety Report 15535227 (Version 1)
Quarter: 2018Q4

REPORT INFORMATION
  Report Type: Spontaneous
  Country: US (occurrence: US)
  Receive Date: 20181022
  Receipt Date: 20181022
  Transmission Date: 20190205
  Serious: Yes (Other)
  Sender: FDA-Public Use
  Company Number: US-CONCORDIA PHARMACEUTICALS INC.-GSH201810-003754

PATIENT
  Age: 74 Year
  Sex: Female
  Weight: 55.84 kg

DRUGS (1)
  1. HYDROXYCHLOROQUINE 200 MG TABLET [Suspect]
     Active Substance: HYDROXYCHLOROQUINE
     Indication: SYSTEMIC LUPUS ERYTHEMATOSUS
     Route: 048
     Dates: end: 20181011

REACTIONS (1)
  - Blindness unilateral [Not Recovered/Not Resolved]
